FAERS Safety Report 22538002 (Version 2)
Quarter: 2023Q2

REPORT INFORMATION
  Report Type: Spontaneous
  Country: US (occurrence: US)
  Receive Date: 20230608
  Receipt Date: 20230614
  Transmission Date: 20230721
  Serious: No
  Sender: FDA-Public Use
  Company Number: US-BIOMARINAP-US-2023-150812

PATIENT

DRUGS (1)
  1. PALYNZIQ [Suspect]
     Active Substance: PEGVALIASE-PQPZ
     Indication: Product used for unknown indication
     Route: 058

REACTIONS (6)
  - Pyrexia [Unknown]
  - Nasopharyngitis [Unknown]
  - Lymphadenopathy [Unknown]
  - Nausea [Unknown]
  - Headache [Unknown]
  - Chills [Unknown]
